FAERS Safety Report 4599986-4 (Version None)
Quarter: 2005Q1

REPORT INFORMATION
  Report Type: 
  Country: None (occurrence: None)
  Receive Date: 20050303
  Receipt Date: 20050225
  Transmission Date: 20050727
  Serious: Yes (Death)
  Sender: FDA-Public Use
  Company Number: 2005UW03156

PATIENT
  Sex: Male

DRUGS (1)
  1. ZOLADEX [Suspect]
     Dosage: 10.8 MG SQ
     Route: 058
     Dates: start: 20040801

REACTIONS (2)
  - MEDICATION ERROR [None]
  - UNEVALUABLE EVENT [None]
